FAERS Safety Report 4296741-X (Version None)
Quarter: 2004Q1

REPORT INFORMATION
  Report Type: 
  Country: None (occurrence: None)
  Receive Date: 20040126
  Receipt Date: 20030905
  Transmission Date: 20041129
  Serious: No
  Sender: FDA-Public Use
  Company Number: USA030946349

PATIENT
  Sex: Male

DRUGS (1)
  1. STRATTERA [Suspect]
     Indication: DEPRESSION
     Dosage: 40 MG/IN THE MORNING
     Dates: start: 20030903

REACTIONS (3)
  - DYSURIA [None]
  - MICTURITION URGENCY [None]
  - URINARY HESITATION [None]
